FAERS Safety Report 4703005-6 (Version None)
Quarter: 2005Q2

REPORT INFORMATION
  Report Type: 
  Country: None (occurrence: None)
  Receive Date: 20050629
  Receipt Date: 20050621
  Transmission Date: 20051028
  Serious: Yes (Other)
  Sender: FDA-Public Use
  Company Number: PHBS2005YU08946

PATIENT
  Age: 47 Year
  Sex: Female
  Weight: 70 kg

DRUGS (1)
  1. TEGRETOL [Suspect]
     Indication: EPILEPSY
     Dosage: 1600 MG/DAY
     Route: 048
     Dates: start: 20030101, end: 20050101

REACTIONS (4)
  - DYSURIA [None]
  - MICTURITION URGENCY [None]
  - NEUROGENIC BLADDER [None]
  - URINARY INCONTINENCE [None]
